FAERS Safety Report 9543521 (Version 2)
Quarter: 2013Q3

REPORT INFORMATION
  Report Type: Spontaneous
  Country: JP (occurrence: JP)
  Receive Date: 20130923
  Receipt Date: 20130923
  Transmission Date: 20140515
  Serious: Yes (Other)
  Sender: FDA-Public Use
  Company Number: JP-009507513-1112USA03181

PATIENT
  Age: 46 Year
  Sex: Male

DRUGS (1)
  1. JANUVIA TABLETS 25MG [Suspect]
     Indication: DIABETES MELLITUS
     Dosage: UNK
     Route: 048
     Dates: end: 201301

REACTIONS (4)
  - Dermatitis [Unknown]
  - Nail avulsion [Unknown]
  - Erythema [Unknown]
  - Upper extremity mass [Not Recovered/Not Resolved]
